FAERS Safety Report 8553552-4 (Version None)
Quarter: 2012Q3

REPORT INFORMATION
  Report Type: 
  Country: None (occurrence: None)
  Receive Date: 20120731
  Receipt Date: 20120727
  Transmission Date: 20120928
  Serious: No
  Sender: FDA-Public Use
  Company Number: US-PFIZER INC-2012182914

PATIENT
  Sex: Female
  Weight: 66.213 kg

DRUGS (2)
  1. RELPAX [Suspect]
     Indication: MIGRAINE
     Dosage: 40 MG, 1X/DAY
     Route: 048
     Dates: start: 20070101
  2. CELEBREX [Concomitant]
     Dosage: UNK

REACTIONS (1)
  - CONTUSION [None]
